FAERS Safety Report 4286070-2 (Version None)
Quarter: 2004Q1

REPORT INFORMATION
  Report Type: 
  Country: None (occurrence: None)
  Receive Date: 20040202
  Receipt Date: 20040202
  Transmission Date: 20041129
  Serious: Yes (Life-Threatening)
  Sender: FDA-Public Use
  Company Number: None

PATIENT
  Age: 45 Year
  Sex: Male
  Weight: 75 kg

DRUGS (3)
  1. VALPROIC ACID [Suspect]
     Indication: CONVULSION
     Dosage: 500 MG PO TID
     Route: 048
     Dates: start: 20030826, end: 20030911
  2. RANITIDINE [Concomitant]
  3. ZOSYN [Concomitant]

REACTIONS (3)
  - AMMONIA INCREASED [None]
  - MENTAL STATUS CHANGES [None]
  - RESPIRATORY DISTRESS [None]
